FAERS Safety Report 5256043-1 (Version None)
Quarter: 2007Q1

REPORT INFORMATION
  Report Type: 
  Country: None (occurrence: None)
  Receive Date: 20070302
  Receipt Date: 20070302
  Transmission Date: 20070707
  Serious: No
  Sender: FDA-Public Use
  Company Number: None

PATIENT
  Age: 62 Year
  Sex: Female
  Weight: 68.0396 kg

DRUGS (1)
  1. WARFARIN SODIUM [Suspect]
     Indication: AORTIC ANEURYSM REPAIR
     Dosage: 2 MG/4 MG PO ALTERNATING DAILY
     Route: 048
     Dates: start: 20050501

REACTIONS (2)
  - NO THERAPEUTIC RESPONSE [None]
  - PHARMACEUTICAL PRODUCT COMPLAINT [None]
